FAERS Safety Report 5326325-3 (Version None)
Quarter: 2007Q2

REPORT INFORMATION
  Report Type: 
  Country: None (occurrence: None)
  Receive Date: 20070516
  Receipt Date: 20070504
  Transmission Date: 20071010
  Serious: Yes (Other)
  Sender: FDA-Public Use
  Company Number: HQWYE040007MAY07

PATIENT
  Age: 65 Year
  Sex: Female

DRUGS (3)
  1. EFFEXOR XR [Suspect]
     Route: 048
  2. NAMENDA [Concomitant]
     Dosage: UNKNOWN
  3. ARICEPT [Concomitant]
     Dosage: UNKNOWN

REACTIONS (1)
  - HYPERTENSIVE CRISIS [None]
